FAERS Safety Report 9664737 (Version 2)
Quarter: 2013Q4

REPORT INFORMATION
  Report Type: Spontaneous
  Country: CA (occurrence: CA)
  Receive Date: 20131101
  Receipt Date: 20131122
  Transmission Date: 20140711
  Serious: Yes (Other)
  Sender: FDA-Public Use
  Company Number: CHPA2013CA016193

PATIENT
  Age: 67 Year
  Sex: Female

DRUGS (12)
  1. BUCKLEY^S BEDTIME, NIGHTIME COUGH MIXTURE [Suspect]
     Indication: HEAD DISCOMFORT
     Dosage: 3 TO 4 DROPS, UNK
     Route: 048
  2. BUCKLEY^S BEDTIME, NIGHTIME COUGH MIXTURE [Suspect]
     Indication: OFF LABEL USE
  3. BUCKLEY^S BEDTIME, NIGHTIME COUGH MIXTURE [Suspect]
     Indication: RHINORRHOEA
  4. BUCKLEY^S BEDTIME, NIGHTIME COUGH MIXTURE [Suspect]
     Indication: INSOMNIA
  5. BUCKLEY^S BEDTIME [Suspect]
     Indication: HEAD DISCOMFORT
     Dosage: 3 TO 4 DROPS, UNK
     Route: 048
  6. BUCKLEY^S BEDTIME [Suspect]
     Indication: OFF LABEL USE
  7. BUCKLEY^S BEDTIME [Suspect]
     Indication: RHINORRHOEA
  8. BUCKLEY^S BEDTIME [Suspect]
     Indication: INSOMNIA
  9. BUCKLEY?S COMPLETE NIGHTTIME [Suspect]
     Indication: HEAD DISCOMFORT
     Dosage: 3 TO 4 DROPS, UNK
     Route: 048
  10. BUCKLEY?S COMPLETE NIGHTTIME [Suspect]
     Indication: OFF LABEL USE
  11. BUCKLEY?S COMPLETE NIGHTTIME [Suspect]
     Indication: RHINORRHOEA
  12. BUCKLEY?S COMPLETE NIGHTTIME [Suspect]
     Indication: INSOMNIA

REACTIONS (9)
  - Nasal disorder [Unknown]
  - Sinus disorder [Not Recovered/Not Resolved]
  - Procedural complication [Recovered/Resolved]
  - Pain [Not Recovered/Not Resolved]
  - Insomnia [Not Recovered/Not Resolved]
  - Underdose [Unknown]
  - Wrong technique in drug usage process [Unknown]
  - Therapeutic response unexpected [Unknown]
  - Therapeutic response decreased [Unknown]
